FAERS Safety Report 16290658 (Version 2)
Quarter: 2019Q2

REPORT INFORMATION
  Report Type: Spontaneous
  Country: US (occurrence: US)
  Receive Date: 20190509
  Receipt Date: 20190610
  Transmission Date: 20190711
  Serious: Yes (Disabling)
  Sender: FDA-Public Use
  Company Number: US-JNJFOC-20190501934

PATIENT
  Sex: Female
  Weight: 79.83 kg

DRUGS (2)
  1. DILTIAZEM. [Concomitant]
     Active Substance: DILTIAZEM
     Indication: HEART RATE IRREGULAR
     Route: 048
  2. XARELTO [Suspect]
     Active Substance: RIVAROXABAN
     Indication: HEART RATE IRREGULAR
     Dosage: EVERY EVENING WITH FOOD
     Route: 048

REACTIONS (4)
  - Product dose omission [Unknown]
  - Product packaging issue [Unknown]
  - Product size issue [Unknown]
  - Disability [Unknown]
